FAERS Safety Report 7993017-1 (Version None)
Quarter: 2011Q4

REPORT INFORMATION
  Report Type: 
  Country: None (occurrence: None)
  Receive Date: 20111219
  Receipt Date: 20110614
  Transmission Date: 20120403
  Serious: No
  Sender: FDA-Public Use
  Company Number: US-ASTRAZENECA-2011SE36434

PATIENT
  Age: 40 Year
  Sex: Female

DRUGS (3)
  1. REMERON [Suspect]
  2. GABAPENTIN [Suspect]
  3. CRESTOR [Suspect]
     Route: 048

REACTIONS (3)
  - MENTAL IMPAIRMENT [None]
  - FEELING ABNORMAL [None]
  - MALAISE [None]
